FAERS Safety Report 4562397-1 (Version None)
Quarter: 2005Q1

REPORT INFORMATION
  Report Type: 
  Country: None (occurrence: None)
  Receive Date: 20050127
  Receipt Date: 20040511
  Transmission Date: 20050727
  Serious: No
  Sender: FDA-Public Use
  Company Number: US-BRISTOL-MYERS SQUIBB COMPANY-12585311

PATIENT
  Age: 45 Year
  Sex: Female

DRUGS (1)
  1. KENALOG-10 [Suspect]
     Indication: ECZEMA
     Dosage: 5MG/CC; INJECTED INTO HEEL AREA OF FOOT
     Route: 051

REACTIONS (1)
  - CELLULITIS [None]
